FAERS Safety Report 5774220-8 (Version None)
Quarter: 2008Q2

REPORT INFORMATION
  Report Type: 
  Country: None (occurrence: None)
  Receive Date: 20080616
  Receipt Date: 20080606
  Transmission Date: 20081010
  Serious: Yes (Other)
  Sender: FDA-Public Use
  Company Number: ZA-ROCHE-568982

PATIENT
  Sex: Male
  Weight: 70 kg

DRUGS (3)
  1. ISOTRETINOIN [Suspect]
     Indication: ACNE
     Dosage: STRENGTH REPORTED AS 40 MG. DAILY.
     Route: 048
     Dates: start: 20080315, end: 20080415
  2. ISOTRETINOIN [Suspect]
     Dosage: STRENGTH REPORTED AS 60 MG. DAILY.
     Route: 048
     Dates: start: 20080416, end: 20080609
  3. ISOTRETINOIN [Suspect]
     Dosage: STRENGTH REPORTED AS 40 MG. DAILY.
     Route: 048
     Dates: start: 20080610

REACTIONS (2)
  - ABNORMAL BEHAVIOUR [None]
  - AGGRESSION [None]
